FAERS Safety Report 8765765 (Version 3)
Quarter: 2012Q4

REPORT INFORMATION
  Report Type: 
  Country: US (occurrence: US)
  Receive Date: 20120903
  Receipt Date: 20121109
  Transmission Date: 20130627
  Serious: No
  Sender: FDA-Public Use
  Company Number: US-PFIZER INC-2012212759

PATIENT
  Age: 55 Year
  Sex: Female
  Weight: 77 kg

DRUGS (6)
  1. SUTENT [Suspect]
     Indication: METASTATIC RENAL CELL CARCINOMA
     Dosage: 50 mg, UNK
     Route: 048
     Dates: start: 20120803, end: 20120815
  2. SUTENT [Suspect]
     Dosage: 50 mg every other day
     Dates: start: 20120824, end: 20120830
  3. METFORMIN [Concomitant]
     Dosage: UNK
  4. GLIPIZIDE [Concomitant]
     Dosage: twice a day per sliding scale
  5. LOVASTATIN [Concomitant]
     Dosage: UNK
  6. IRON PILLS [Concomitant]
     Dosage: UNK

REACTIONS (7)
  - Dehydration [Recovered/Resolved]
  - Pyrexia [Recovered/Resolved]
  - Dysgeusia [Recovered/Resolved]
  - Decreased appetite [Recovered/Resolved]
  - Mucosal inflammation [Recovered/Resolved]
  - Arthralgia [Recovering/Resolving]
  - Back pain [Not Recovered/Not Resolved]
